FAERS Safety Report 4752101-6 (Version None)
Quarter: 2005Q3

REPORT INFORMATION
  Report Type: 
  Country: None (occurrence: None)
  Receive Date: 20050825
  Receipt Date: 20050722
  Transmission Date: 20060218
  Serious: Yes (Other)
  Sender: FDA-Public Use
  Company Number: GB-BRISTOL-MYERS SQUIBB COMPANY-13050323

PATIENT
  Age: 73 Year
  Sex: Male
  Weight: 105 kg

DRUGS (4)
  1. APROVEL [Suspect]
     Indication: BLOOD PRESSURE
     Route: 048
     Dates: start: 20050630, end: 20050101
  2. CIPROFLOXACIN [Concomitant]
  3. ASPIRIN [Concomitant]
     Dosage: FOR MANY YEARS
  4. METFORMIN HCL [Concomitant]
     Indication: DIABETES MELLITUS
     Dates: start: 20020503

REACTIONS (9)
  - BALANCE DISORDER [None]
  - DISORIENTATION [None]
  - DYSPHONIA [None]
  - EAR PAIN [None]
  - FUNGAL RASH [None]
  - NASAL CONGESTION [None]
  - OEDEMA PERIPHERAL [None]
  - RHINITIS [None]
  - VISUAL ACUITY REDUCED [None]
